FAERS Safety Report 7744885-X (Version None)
Quarter: 2011Q3

REPORT INFORMATION
  Report Type: 
  Country: None (occurrence: None)
  Receive Date: 20110912
  Receipt Date: 20110831
  Transmission Date: 20111222
  Serious: Yes (Other)
  Sender: FDA-Public Use
  Company Number: US-CELGENEUS-163-21880-11090125

PATIENT
  Sex: Male

DRUGS (7)
  1. LOPERAMIDE HCL [Concomitant]
     Route: 065
  2. COUMADIN [Concomitant]
     Route: 065
  3. DEXAMETHASONE [Concomitant]
     Route: 065
  4. FISH OIL [Concomitant]
     Route: 065
  5. REVLIMID [Suspect]
     Indication: MULTIPLE MYELOMA
     Dosage: 10 MILLIGRAM
     Route: 048
     Dates: start: 20100315
  6. PERCOCET [Concomitant]
     Route: 065
  7. ZOMETA [Concomitant]
     Route: 065

REACTIONS (1)
  - PULMONARY MASS [None]
